FAERS Safety Report 8849940 (Version 1)
Quarter: 2012Q4

REPORT INFORMATION
  Report Type: Report from Study
  Country: PL (occurrence: PL)
  Receive Date: 20121019
  Receipt Date: 20121019
  Transmission Date: 20130627
  Serious: Yes (Hospitalization)
  Sender: FDA-Public Use
  Company Number: PL-BAXTER-2012BAX019760

PATIENT
  Age: 56 Year
  Sex: Female
  Weight: 53 kg

DRUGS (9)
  1. ENDOXAN [Suspect]
     Indication: MALIGNANT BREAST NEOPLASM
     Route: 042
     Dates: start: 20100901
  2. PERTUZUMAB [Suspect]
     Indication: MALIGNANT BREAST NEOPLASM
     Route: 042
     Dates: start: 20090707
  3. PERTUZUMAB [Suspect]
     Route: 042
     Dates: start: 20090707
  4. PERTUZUMAB [Suspect]
     Route: 042
     Dates: start: 20090430
  5. TRASTUZUMAB [Suspect]
     Indication: MALIGNANT BREAST NEOPLASM
     Route: 042
     Dates: start: 20090901
  6. TRASTUZUMAB [Suspect]
     Route: 042
     Dates: start: 20100804
  7. DOCETAXEL [Suspect]
     Indication: MALIGNANT BREAST NEOPLASM
     Route: 042
     Dates: start: 20090707
  8. DOCETAXEL [Suspect]
     Route: 042
     Dates: start: 20090430
  9. EPIRUBICIN [Suspect]
     Indication: MALIGNANT BREAST NEOPLASM
     Route: 042
     Dates: start: 20090901

REACTIONS (1)
  - Myeloproliferative disorder [Not Recovered/Not Resolved]
